FAERS Safety Report 4465078-8 (Version None)
Quarter: 2004Q3

REPORT INFORMATION
  Report Type: 
  Country: None (occurrence: None)
  Receive Date: 20040928
  Receipt Date: 20040928
  Transmission Date: 20050211
  Serious: Yes (Hospitalization)
  Sender: FDA-Public Use
  Company Number: None

PATIENT
  Sex: Male

DRUGS (13)
  1. CEPHALEXIN [Suspect]
     Indication: PROPHYLAXIS
  2. DIPYRIDAMOLE [Concomitant]
  3. DOCUSATE [Concomitant]
  4. FELODIPINE [Concomitant]
  5. GLYBURIDE [Concomitant]
  6. IMDUR [Concomitant]
  7. ASPIRIN [Concomitant]
  8. GEMFIBROZIL [Concomitant]
  9. LANSOPRAZOLE [Concomitant]
  10. SALMETEROL [Concomitant]
  11. ALLOPURINOL [Concomitant]
  12. OMEPRAZOLE [Concomitant]
  13. ALBUTEROL [Concomitant]

REACTIONS (3)
  - BACTERIAL TEST POSITIVE [None]
  - CLOSTRIDIUM DIFFICILE TOXIN TEST [None]
  - DIARRHOEA [None]
